FAERS Safety Report 10913719 (Version 2)
Quarter: 2015Q1

REPORT INFORMATION
  Report Type: Spontaneous
  Country: JP (occurrence: None)
  Receive Date: 20150310
  Receipt Date: 20150317
  Transmission Date: 20150721
  Serious: Yes (Hospitalization)
  Sender: FDA-Public Use
  Company Number: 2015BCR00087

PATIENT
  Age: 67 Year
  Sex: Female

DRUGS (6)
  1. ZYPREXA [Suspect]
     Active Substance: OLANZAPINE
     Route: 048
  2. MEVALOTIN (PRAVASTATIN SODIUM) [Suspect]
     Active Substance: PRAVASTATIN SODIUM
     Route: 048
  3. SOLANAX [Suspect]
     Active Substance: ALPRAZOLAM
     Route: 048
  4. RAPIACTA [Suspect]
     Active Substance: PERAMIVIR
     Indication: INFLUENZA
     Route: 042
     Dates: start: 20150101, end: 20150101
  5. ROHYPNOL (FLUNITRAZEPAM) [Suspect]
     Active Substance: FLUNITRAZEPAM
     Route: 048
  6. NORVASC [Suspect]
     Active Substance: AMLODIPINE BESYLATE
     Route: 048

REACTIONS (1)
  - Acute respiratory distress syndrome [None]

NARRATIVE: CASE EVENT DATE: 20150104
